FAERS Safety Report 6829572-4 (Version None)
Quarter: 2010Q3

REPORT INFORMATION
  Report Type: 
  Country: None (occurrence: None)
  Receive Date: 20100709
  Receipt Date: 20070405
  Transmission Date: 20110219
  Serious: No
  Sender: FDA-Public Use
  Company Number: US-PFIZER INC-2007003311

PATIENT
  Sex: Female
  Weight: 62.6 kg

DRUGS (7)
  1. CHANTIX [Suspect]
     Indication: SMOKING CESSATION THERAPY
     Dates: start: 20070106, end: 20070109
  2. LISINOPRIL [Concomitant]
  3. ZYRTEC [Concomitant]
  4. NASONEX [Concomitant]
  5. ZESTORETIC [Concomitant]
  6. VITAMIN K TAB [Concomitant]
  7. PROGESTERON [Concomitant]

REACTIONS (1)
  - RASH [None]
